FAERS Safety Report 5226248-4 (Version None)
Quarter: 2007Q1

REPORT INFORMATION
  Report Type: 
  Country: None (occurrence: None)
  Receive Date: 20070129
  Receipt Date: 20070116
  Transmission Date: 20070707
  Serious: Yes (Death, Hospitalization)
  Sender: FDA-Public Use
  Company Number: HQWYE064302JAN07

PATIENT
  Age: 79 Year
  Sex: Male

DRUGS (8)
  1. ANCARON (AMIODARONE, UNSPEC) [Suspect]
     Indication: ATRIAL FIBRILLATION
     Dosage: 200 MG 1X PER 1 DAY; ORAL; 100 MG 1X PER 1 DAY; ORAL
     Route: 048
     Dates: start: 20061207, end: 20061212
  2. ANCARON (AMIODARONE, UNSPEC) [Suspect]
     Indication: ATRIAL FIBRILLATION
     Dosage: 200 MG 1X PER 1 DAY; ORAL; 100 MG 1X PER 1 DAY; ORAL
     Route: 048
     Dates: start: 20061213
  3. ALDACTONE [Suspect]
     Indication: CARDIAC FAILURE CHRONIC
     Dosage: 25 MG 1X PER 1 DAY; ORAL
     Route: 048
     Dates: start: 20061128
  4. LASIX [Suspect]
     Indication: CARDIAC FAILURE CHRONIC
     Dosage: 20 MG 1X PER 1 DAY; ORAL
     Route: 048
     Dates: start: 20061128
  5. LISINOPRIL [Suspect]
     Indication: CARDIAC FAILURE CHRONIC
     Dosage: 10 MG 1X PER 1 DAY; ORAL
     Route: 048
     Dates: start: 20061128
  6. BAYASPIRINA (ACETYLSALICYLIC ACID) [Concomitant]
  7. WARFARIN POTASSIUM [Concomitant]
  8. CIBENOL (CIBENZOLINE SUCCINATE) [Concomitant]

REACTIONS (6)
  - ANOREXIA [None]
  - ARRHYTHMIA [None]
  - ATRIOVENTRICULAR BLOCK COMPLETE [None]
  - DEHYDRATION [None]
  - DEPRESSED LEVEL OF CONSCIOUSNESS [None]
  - SINUS ARREST [None]
